FAERS Safety Report 16255678 (Version 1)
Quarter: 2019Q2

REPORT INFORMATION
  Report Type: Spontaneous
  Country: US (occurrence: US)
  Receive Date: 20190430
  Receipt Date: 20190430
  Transmission Date: 20190711
  Serious: Yes (Other)
  Sender: FDA-Public Use
  Company Number: US-BAYER-2019-085634

PATIENT
  Age: 74 Year
  Sex: Female
  Weight: 96.6 kg

DRUGS (4)
  1. ADEMPAS [Suspect]
     Active Substance: RIOCIGUAT
     Dosage: UNK
  2. ADEMPAS [Suspect]
     Active Substance: RIOCIGUAT
     Dosage: 1.0 MG, TID
  3. TYVASO [Suspect]
     Active Substance: TREPROSTINIL
     Indication: PULMONARY ARTERIAL HYPERTENSION
     Dosage: UNK
     Dates: start: 20190228
  4. XARELTO [Concomitant]
     Active Substance: RIVAROXABAN

REACTIONS (7)
  - Joint injury [None]
  - Limb injury [None]
  - Blood glucose increased [None]
  - Syncope [None]
  - Dizziness [None]
  - Headache [None]
  - Fall [None]
